FAERS Safety Report 24687558 (Version 1)
Quarter: 2024Q4

REPORT INFORMATION
  Report Type: Spontaneous
  Country: CN (occurrence: CN)
  Receive Date: 20241202
  Receipt Date: 20241202
  Transmission Date: 20250115
  Serious: Yes (Life-Threatening, Other)
  Sender: BAYER HEALTHCARE PHARMACEUTICALS INC.
  Company Number: CN-BAYER-2024A168476

PATIENT
  Age: 38 Year
  Sex: Male
  Weight: 90 kg

DRUGS (3)
  1. ULTRAVIST [Suspect]
     Active Substance: IOPROMIDE
     Indication: Computerised tomogram head
     Dosage: 100 ML, ONCE
     Route: 042
     Dates: start: 20241121, end: 20241121
  2. ULTRAVIST [Suspect]
     Active Substance: IOPROMIDE
     Indication: Arteriogram carotid
  3. SODIUM CHLORIDE [Concomitant]
     Active Substance: SODIUM CHLORIDE
     Indication: Vehicle solution use
     Dosage: 250 ML, ONCE
     Route: 042
     Dates: start: 20241121, end: 20241121

REACTIONS (5)
  - Contrast media allergy [Recovering/Resolving]
  - Tachycardia [Recovered/Resolved]
  - Body temperature increased [Recovering/Resolving]
  - Blood pressure increased [Recovered/Resolved]
  - Rash erythematous [Recovering/Resolving]

NARRATIVE: CASE EVENT DATE: 20241121
